FAERS Safety Report 14488992 (Version 1)
Quarter: 2018Q1

REPORT INFORMATION
  Report Type: Spontaneous
  Country: US (occurrence: US)
  Receive Date: 20180205
  Receipt Date: 20180205
  Transmission Date: 20180509
  Serious: No
  Sender: FDA-Public Use
  Company Number: US-AMGEN-USASP2017049301

PATIENT
  Age: 73 Year
  Sex: Female

DRUGS (4)
  1. FRAGMIN [Suspect]
     Active Substance: DALTEPARIN SODIUM
     Indication: PRODUCT USED FOR UNKNOWN INDICATION
     Dosage: UNK
     Route: 065
  2. DOXORUBICIN [Concomitant]
     Active Substance: DOXORUBICIN
     Indication: ANGIOSARCOMA
     Dosage: UNK (ADMINISTERED ON DAY 1)
  3. OLARATUMAB [Concomitant]
     Active Substance: OLARATUMAB
     Indication: ANGIOSARCOMA
     Dosage: UNK (ADMINISTERED ON DAY 1 AND 7)
  4. NEULASTA [Suspect]
     Active Substance: PEGFILGRASTIM
     Indication: PRODUCT USED FOR UNKNOWN INDICATION
     Dosage: UNK
     Route: 065

REACTIONS (7)
  - Underdose [Unknown]
  - Adverse drug reaction [Unknown]
  - Migraine [Recovered/Resolved]
  - Application site haemorrhage [Unknown]
  - Nodule [Unknown]
  - Wrong technique in product usage process [Unknown]
  - White blood cell count decreased [Unknown]

NARRATIVE: CASE EVENT DATE: 201703
